FAERS Safety Report 5754552-X (Version None)
Quarter: 2008Q2

REPORT INFORMATION
  Report Type: 
  Country: None (occurrence: None)
  Receive Date: 20080530
  Receipt Date: 20080520
  Transmission Date: 20081010
  Serious: Yes (Other)
  Sender: FDA-Public Use
  Company Number: US-PFIZER INC-2008040525

PATIENT

DRUGS (1)
  1. ZYVOX [Suspect]
     Indication: WOUND INFECTION

REACTIONS (2)
  - DRUG RESISTANCE [None]
  - ENTEROCOCCAL INFECTION [None]
